FAERS Safety Report 7130406-1 (Version None)
Quarter: 2010Q4

REPORT INFORMATION
  Report Type: 
  Country: None (occurrence: None)
  Receive Date: 20101201
  Receipt Date: 20101123
  Transmission Date: 20110411
  Serious: Yes (Other)
  Sender: FDA-Public Use
  Company Number: PHHY2010CA71523

PATIENT
  Sex: Male

DRUGS (1)
  1. SANDOSTATIN LAR [Suspect]
     Indication: CARCINOID TUMOUR
     Dosage: 60 MG EVERY 2 WEEKS
     Route: 030
     Dates: start: 20040909

REACTIONS (7)
  - ANAL FISSURE [None]
  - BALANCE DISORDER [None]
  - DIARRHOEA [None]
  - FATIGUE [None]
  - GAIT DISTURBANCE [None]
  - HAEMORRHOIDS [None]
  - PLATELET DISORDER [None]
